FAERS Safety Report 6694963-1 (Version None)
Quarter: 2010Q2

REPORT INFORMATION
  Report Type: 
  Country: None (occurrence: None)
  Receive Date: 20100423
  Receipt Date: 20100413
  Transmission Date: 20101027
  Serious: Yes (Hospitalization)
  Sender: FDA-Public Use
  Company Number: US-GENENTECH-299974

PATIENT
  Sex: Male
  Weight: 10.7 kg

DRUGS (10)
  1. NUTROPIN AQ [Suspect]
     Indication: RENAL FAILURE CHRONIC
     Dosage: 0.6 MG, QD
     Route: 058
     Dates: start: 20100301
  2. AQUADEKS [Concomitant]
     Indication: DRUG USE FOR UNKNOWN INDICATION
     Dosage: 1 ML, QD
     Route: 048
  3. FERROUS SULFATE TAB [Concomitant]
     Indication: DRUG USE FOR UNKNOWN INDICATION
     Dosage: 0.6 ML, QD
     Route: 065
  4. NEPHRONEX LIQUID [Concomitant]
     Indication: DRUG USE FOR UNKNOWN INDICATION
     Dosage: 2.5 ML, QD
     Route: 065
  5. LEVOTHYROXINE [Concomitant]
     Indication: DRUG USE FOR UNKNOWN INDICATION
     Dosage: 0.05 MG, QD
     Route: 048
  6. CAPTOPRIL [Concomitant]
     Indication: DRUG USE FOR UNKNOWN INDICATION
     Dosage: 6.25 MG, Q12H
     Route: 065
  7. NIFEDIPINE [Concomitant]
     Indication: DRUG USE FOR UNKNOWN INDICATION
     Dosage: 10 MG, QD
     Route: 048
  8. PROPRANOLOL [Concomitant]
     Indication: DRUG USE FOR UNKNOWN INDICATION
     Dosage: 40 MG, TID
     Route: 048
  9. EPOGEN [Concomitant]
     Indication: DRUG USE FOR UNKNOWN INDICATION
     Dosage: UNK
     Route: 065
  10. MEDICATION (UNK INGREDIENT) [Concomitant]
     Indication: GROWTH HORMONE DEFICIENCY
     Dosage: UNK
     Route: 065

REACTIONS (2)
  - ABNORMAL BEHAVIOUR [None]
  - CONVULSION [None]
